FAERS Safety Report 10238250 (Version 1)
Quarter: 2014Q2

REPORT INFORMATION
  Report Type: Spontaneous
  Country: US (occurrence: US)
  Receive Date: 20140616
  Receipt Date: 20140616
  Transmission Date: 20141212
  Serious: No
  Sender: FDA-Public Use
  Company Number: US-PFIZER INC-2014160634

PATIENT
  Age: 64 Year
  Sex: Female
  Weight: 35.37 kg

DRUGS (3)
  1. GABAPENTIN [Suspect]
     Indication: CENTRAL PAIN SYNDROME
     Dosage: 600 MG (BY TAKING TWO 300MG CAPSULE AT A TIME), 3X/DAY
     Route: 048
  2. TRAMADOL [Concomitant]
     Indication: PAIN
     Dosage: UNK, 3X/DAY
  3. FLUCAINE [Concomitant]
     Dosage: UNK

REACTIONS (1)
  - Anxiety [Unknown]
